FAERS Safety Report 5139466-0 (Version None)
Quarter: 2006Q4

REPORT INFORMATION
  Report Type: 
  Country: None (occurrence: None)
  Receive Date: 20061026
  Receipt Date: 20061026
  Transmission Date: 20070319
  Serious: Yes (Life-Threatening, Other)
  Sender: FDA-Public Use
  Company Number: None

PATIENT
  Age: 63 Year
  Sex: Male
  Weight: 84.369 kg

DRUGS (12)
  1. FLOLAN [Suspect]
     Indication: PULMONARY HYPERTENSION
     Dosage: 18NG/KG/MIN IV
     Route: 042
  2. CALCIUM [Concomitant]
  3. COUMADIN [Concomitant]
  4. FASOMAX [Concomitant]
  5. LIPITOR [Concomitant]
  6. LOMOTIL [Concomitant]
  7. NORVASC [Concomitant]
  8. ZYRITEC [Concomitant]
  9. DIGOXIN [Concomitant]
  10. NAPROCIN [Concomitant]
  11. NASACORT [Concomitant]
  12. LYRICA [Concomitant]

REACTIONS (5)
  - BLOOD CULTURE POSITIVE [None]
  - CENTRAL LINE INFECTION [None]
  - DYSPNOEA [None]
  - FATIGUE [None]
  - PSEUDOMONAS INFECTION [None]
